FAERS Safety Report 20544008 (Version 1)
Quarter: 2022Q1

REPORT INFORMATION
  Report Type: Spontaneous
  Country: CN (occurrence: CN)
  Receive Date: 20220303
  Receipt Date: 20220303
  Transmission Date: 20220423
  Serious: Yes (Other)
  Sender: FDA-Public Use
  Company Number: CN-SPECGX-T202200260

PATIENT
  Age: 68 Year
  Sex: Female
  Weight: 50 kg

DRUGS (2)
  1. ACETAMINOPHEN\OXYCODONE HYDROCHLORIDE [Suspect]
     Active Substance: ACETAMINOPHEN\OXYCODONE HYDROCHLORIDE
     Indication: Post herpetic neuralgia
     Dosage: 5 MILLIGRAM, TID
     Route: 048
     Dates: start: 20220217, end: 20220218
  2. ACETAMINOPHEN\OXYCODONE HYDROCHLORIDE [Suspect]
     Active Substance: ACETAMINOPHEN\OXYCODONE HYDROCHLORIDE
     Dosage: 2.5 MILLIGRAM, TID
     Route: 048
     Dates: start: 20220218, end: 20220218

REACTIONS (4)
  - Gastrooesophageal reflux disease [Recovering/Resolving]
  - Discomfort [Recovering/Resolving]
  - Nausea [Recovering/Resolving]
  - Abdominal distension [Recovering/Resolving]

NARRATIVE: CASE EVENT DATE: 20220217
